FAERS Safety Report 8187200-2 (Version None)
Quarter: 2012Q1

REPORT INFORMATION
  Report Type: 
  Country: None (occurrence: None)
  Receive Date: 20120301
  Receipt Date: 20120227
  Transmission Date: 20120608
  Serious: Yes (Other)
  Sender: FDA-Public Use
  Company Number: A0967547A

PATIENT
  Age: 67 Year
  Sex: Female

DRUGS (1)
  1. UREA PEROXIDE [Suspect]

REACTIONS (2)
  - TINNITUS [None]
  - DEAFNESS UNILATERAL [None]
